FAERS Safety Report 6884959-9 (Version None)
Quarter: 2010Q3

REPORT INFORMATION
  Report Type: 
  Country: None (occurrence: None)
  Receive Date: 20100729
  Receipt Date: 20071005
  Transmission Date: 20110219
  Serious: Yes (Other)
  Sender: FDA-Public Use
  Company Number: US-PFIZER INC-2007083887

PATIENT
  Sex: Female
  Weight: 86.363 kg

DRUGS (10)
  1. CELEBREX [Suspect]
     Indication: PAIN IN EXTREMITY
     Dates: start: 20071003
  2. GLYBURIDE AND METFORMIN HYDROCHLORIDE [Concomitant]
  3. LEVOTHYROXINE SODIUM [Concomitant]
  4. FUROSEMIDE [Concomitant]
  5. LISINOPRIL [Concomitant]
  6. POTASSIUM [Concomitant]
  7. LIPITOR [Concomitant]
  8. PLAVIX [Concomitant]
  9. ACETYLSALICYLIC ACID SRT [Concomitant]
  10. METOPROLOL TARTRATE [Concomitant]

REACTIONS (1)
  - BLOOD GLUCOSE INCREASED [None]
